FAERS Safety Report 11448502 (Version 5)
Quarter: 2020Q2

REPORT INFORMATION
  Report Type: Spontaneous
  Country: JP (occurrence: JP)
  Receive Date: 20150902
  Receipt Date: 20200406
  Transmission Date: 20200713
  Serious: Yes (Hospitalization, Other)
  Sender: FDA-Public Use
  Company Number: JP-GSKJP-JP2015JPN122193AA

PATIENT
  Age: 34 Year
  Sex: Female

DRUGS (2)
  1. LAMICTAL [Suspect]
     Active Substance: LAMOTRIGINE
     Indication: BIPOLAR I DISORDER
     Dosage: 25 MG, QOD
     Route: 048
     Dates: start: 20150813, end: 20150825
  2. LAMICTAL [Suspect]
     Active Substance: LAMOTRIGINE
     Dosage: 25 MG
     Route: 048
     Dates: start: 201810

REACTIONS (17)
  - Oral mucosa erosion [Recovering/Resolving]
  - Rash [Recovering/Resolving]
  - Pyrexia [Recovering/Resolving]
  - Drug reaction with eosinophilia and systemic symptoms [Unknown]
  - Lymphadenopathy [Recovering/Resolving]
  - Rash [Recovering/Resolving]
  - Blister [Recovered/Resolved]
  - Erythema [Recovered/Resolved]
  - Eye discharge [Recovering/Resolving]
  - Lip erosion [Recovering/Resolving]
  - Ocular hyperaemia [Recovering/Resolving]
  - Drug eruption [Recovering/Resolving]
  - Toxic epidermal necrolysis [Recovering/Resolving]
  - Erythema of eyelid [Recovering/Resolving]
  - Skin erosion [Recovering/Resolving]
  - Skin exfoliation [Recovering/Resolving]
  - Rash maculo-papular [Recovering/Resolving]

NARRATIVE: CASE EVENT DATE: 20150823
